FAERS Safety Report 16464012 (Version 1)
Quarter: 2019Q3

REPORT INFORMATION
  Report Type: Spontaneous
  Country: US (occurrence: US)
  Receive Date: 20190620
  Receipt Date: 20190620
  Transmission Date: 20191004
  Serious: Yes (Life-Threatening, Hospitalization, Disabling)
  Sender: FDA-Public Use
  Company Number: None

PATIENT
  Age: 61 Year
  Sex: Female
  Weight: 66.6 kg

DRUGS (9)
  1. NITROFURANTOIN. [Concomitant]
     Active Substance: NITROFURANTOIN
  2. CALCIUM/VITAMIN D [Concomitant]
     Active Substance: CALCIUM\VITAMIN D
  3. FISH OIL [Concomitant]
     Active Substance: FISH OIL
  4. RANITIDINE. [Concomitant]
     Active Substance: RANITIDINE
  5. CINNAMON. [Concomitant]
     Active Substance: CINNAMON
  6. HYDROXYCHLOROQUINE [Concomitant]
     Active Substance: HYDROXYCHLOROQUINE
  7. MAGNESIUM [Concomitant]
     Active Substance: MAGNESIUM
  8. ORENCIA [Suspect]
     Active Substance: ABATACEPT
     Indication: RHEUMATOID ARTHRITIS
     Dosage: ?          OTHER FREQUENCY:EVERY 4 WEEKS;?
     Route: 042
  9. IBUPROFEN. [Concomitant]
     Active Substance: IBUPROFEN

REACTIONS (3)
  - Appendicitis [None]
  - Urinary tract infection [None]
  - Gastrointestinal gangrene [None]

NARRATIVE: CASE EVENT DATE: 20180630
